FAERS Safety Report 20304006 (Version 1)
Quarter: 2022Q1

REPORT INFORMATION
  Report Type: Spontaneous
  Country: FR (occurrence: FR)
  Receive Date: 20220106
  Receipt Date: 20220106
  Transmission Date: 20220423
  Serious: Yes (Other)
  Sender: FDA-Public Use
  Company Number: FR-GSKCCFEMEA-Case-01388524_AE-53411

PATIENT
  Age: 26 Year
  Sex: Female

DRUGS (1)
  1. BENLYSTA [Suspect]
     Active Substance: BELIMUMAB
     Indication: Product used for unknown indication
     Dosage: 500 MG, Z,ONE INJECTION EVERY 4 WEEKS
     Route: 042
     Dates: start: 202004

REACTIONS (2)
  - Leukopenia [Unknown]
  - Off label use [Unknown]

NARRATIVE: CASE EVENT DATE: 20201207
